FAERS Safety Report 5958267-4 (Version None)
Quarter: 2008Q4

REPORT INFORMATION
  Report Type: 
  Country: None (occurrence: None)
  Receive Date: 20081117
  Receipt Date: 20081106
  Transmission Date: 20090506
  Serious: Yes (Other)
  Sender: FDA-Public Use
  Company Number: 2008SP022926

PATIENT
  Age: 72 Year
  Sex: Female

DRUGS (7)
  1. MIRALAX [Suspect]
     Indication: DRUG USE FOR UNKNOWN INDICATION
     Dosage: GM; PO
     Route: 048
  2. CENTRUM SILVER [Suspect]
     Indication: DRUG USE FOR UNKNOWN INDICATION
     Dosage: PO
     Route: 048
  3. METOPROLOL TARTRATE [Concomitant]
  4. ENTOCORT EC [Concomitant]
  5. LASIX [Concomitant]
  6. POTASSIUM CHLORIDE [Concomitant]
  7. AMBIEN [Concomitant]

REACTIONS (4)
  - ABDOMINAL DISTENSION [None]
  - FAECES DISCOLOURED [None]
  - FLATULENCE [None]
  - MUSCLE SPASMS [None]
